FAERS Safety Report 4630176-2 (Version None)
Quarter: 2005Q2

REPORT INFORMATION
  Report Type: 
  Country: None (occurrence: None)
  Receive Date: 20050406
  Receipt Date: 20050302
  Transmission Date: 20051028
  Serious: No
  Sender: FDA-Public Use
  Company Number: DE-SANOFI-SYNTHELABO-A04200500246

PATIENT
  Age: 35 Year
  Sex: Female

DRUGS (4)
  1. QUENSYL - (HYDROCHLOROQUINE SULFATE) - TABLET- 200 MG [Suspect]
     Indication: ARTHRALGIA
     Dosage: 300 MG ORAL
     Route: 048
     Dates: start: 20040201, end: 20040401
  2. QUENSYL - (HYDROCHLOROQUINE SULFATE) - TABLET- 200 MG [Suspect]
     Indication: MIXED CONNECTIVE TISSUE DISEASE
     Dosage: 300 MG ORAL
     Route: 048
     Dates: start: 20040201, end: 20040401
  3. METHYLPREDNISOLONE [Concomitant]
  4. BEXTRA [Concomitant]

REACTIONS (2)
  - ANAEMIA [None]
  - MENORRHAGIA [None]
